FAERS Safety Report 6337407-1 (Version None)
Quarter: 2009Q3

REPORT INFORMATION
  Report Type: 
  Country: None (occurrence: None)
  Receive Date: 20090902
  Receipt Date: 20090825
  Transmission Date: 20100115
  Serious: Yes (Other)
  Sender: FDA-Public Use
  Company Number: JP-JNJFOC-20090703852

PATIENT
  Age: 68 Year
  Sex: Female

DRUGS (1)
  1. ITRIZOLE [Suspect]
     Indication: FUNGAL INFECTION
     Route: 048

REACTIONS (1)
  - HALLUCINATION [None]
